FAERS Safety Report 5473034-6 (Version None)
Quarter: 2007Q4

REPORT INFORMATION
  Report Type: 
  Country: None (occurrence: None)
  Receive Date: 20071001
  Receipt Date: 20070222
  Transmission Date: 20080405
  Serious: No
  Sender: FDA-Public Use
  Company Number: US-ASTRAZENECA-2007UW03459

PATIENT
  Sex: Female

DRUGS (1)
  1. ARIMIDEX [Suspect]
     Route: 048

REACTIONS (5)
  - ARTHRALGIA [None]
  - DEPRESSED MOOD [None]
  - OEDEMA PERIPHERAL [None]
  - SOCIAL AVOIDANT BEHAVIOUR [None]
  - WEIGHT INCREASED [None]
